FAERS Safety Report 24563521 (Version 1)
Quarter: 2024Q4

REPORT INFORMATION
  Report Type: Spontaneous
  Country: HR (occurrence: HR)
  Receive Date: 20241030
  Receipt Date: 20241030
  Transmission Date: 20250115
  Serious: Yes (Hospitalization, Other)
  Sender: BRISTOL-MYERS SQUIBB COMPANY
  Company Number: HR-BRISTOL-MYERS SQUIBB COMPANY-2024-166488

PATIENT
  Age: 76 Year
  Sex: Male

DRUGS (6)
  1. NIVOLUMAB [Suspect]
     Active Substance: NIVOLUMAB
     Indication: Clear cell renal cell carcinoma
     Dosage: I DRUG(S) AND HISTORY (EXCLUDE THOSE USED TO TREAT?? PREGNANCY WITH LAST MONTH OF PERIOD,
     Route: 042
     Dates: start: 20240111
  2. NIVOLUMAB [Suspect]
     Active Substance: NIVOLUMAB
     Dosage: I DRUG(S) AND HISTORY (EXCLUDE THOSE USED TO TREAT?? PREGNANCY WITH LAST MONTH OF PERIOD,
     Route: 042
     Dates: start: 20240201
  3. NIVOLUMAB [Suspect]
     Active Substance: NIVOLUMAB
     Dosage: I DRUG(S) AND HISTORY (EXCLUDE THOSE USED TO TREAT?? PREGNANCY WITH LAST MONTH OF PERIOD,
     Route: 042
     Dates: start: 20240222
  4. IPILIMUMAB [Suspect]
     Active Substance: IPILIMUMAB
     Indication: Clear cell renal cell carcinoma
     Route: 042
     Dates: start: 20240111
  5. IPILIMUMAB [Suspect]
     Active Substance: IPILIMUMAB
     Route: 042
     Dates: start: 20240201
  6. IPILIMUMAB [Suspect]
     Active Substance: IPILIMUMAB
     Route: 042
     Dates: start: 20240222

REACTIONS (15)
  - Atrioventricular block complete [Unknown]
  - Dizziness [Unknown]
  - Dysarthria [Recovering/Resolving]
  - Myasthenic syndrome [Recovering/Resolving]
  - Weight decreased [Unknown]
  - Fatigue [Unknown]
  - Dysphonia [Unknown]
  - Ophthalmoplegia [Recovering/Resolving]
  - Pseudophakia [Recovering/Resolving]
  - Pulmonary embolism [Unknown]
  - Spinal pain [Unknown]
  - Arthralgia [Unknown]
  - Paraneoplastic syndrome [Unknown]
  - Breath sounds abnormal [Unknown]
  - Anisocoria [Unknown]

NARRATIVE: CASE EVENT DATE: 20240101
